FAERS Safety Report 10349718 (Version 1)
Quarter: 2014Q3

REPORT INFORMATION
  Report Type: Spontaneous
  Country: US (occurrence: None)
  Receive Date: 20140728
  Receipt Date: 20140728
  Transmission Date: 20150326
  Serious: Yes (Disabling)
  Sender: FDA-Public Use
  Company Number: None

PATIENT
  Age: 53 Year
  Sex: Male
  Weight: 86.18 kg

DRUGS (2)
  1. LEVAQUIN [Suspect]
     Active Substance: LEVOFLOXACIN
     Indication: PNEUMONIA
     Dosage: LEVAQUIN ONCE DAILY INTO A VEIN
     Route: 042
     Dates: start: 20110503, end: 20110510
  2. CIPRO [Suspect]
     Active Substance: CIPROFLOXACIN HYDROCHLORIDE
     Indication: URINARY TRACT INFECTION
     Dosage: 14  TWICE DAILY TAKEN BY MOUTH
     Route: 048
     Dates: start: 20110201, end: 20110216

REACTIONS (10)
  - Pain in extremity [None]
  - Eye pain [None]
  - Nerve injury [None]
  - Gait disturbance [None]
  - Photophobia [None]
  - Pneumonia [None]
  - Muscle spasms [None]
  - Insomnia [None]
  - Burning sensation [None]
  - Back pain [None]

NARRATIVE: CASE EVENT DATE: 20110503
